FAERS Safety Report 24328900 (Version 1)
Quarter: 2024Q3

REPORT INFORMATION
  Report Type: Spontaneous
  Country: US (occurrence: None)
  Receive Date: 20240917
  Receipt Date: 20240917
  Transmission Date: 20241017
  Serious: Yes (Death)
  Sender: Public
  Company Number: None

PATIENT
  Age: 19 Year
  Sex: Male
  Weight: 79.7 kg

DRUGS (1)
  1. YESCARTA [Suspect]
     Active Substance: AXICABTAGENE CILOLEUCEL
     Indication: Lymphoma
     Dosage: FREQUENCY : ONCE;?
     Route: 042
     Dates: start: 20240624, end: 20240626

REACTIONS (12)
  - Cytokine release syndrome [None]
  - Serum ferritin increased [None]
  - Headache [None]
  - Mental status changes [None]
  - Chills [None]
  - Respiratory distress [None]
  - Immune effector cell-associated neurotoxicity syndrome [None]
  - Tachycardia [None]
  - Pupil fixed [None]
  - Electroencephalogram abnormal [None]
  - Brain herniation [None]
  - Brain oedema [None]

NARRATIVE: CASE EVENT DATE: 20240704
